FAERS Safety Report 14481084 (Version 1)
Quarter: 2018Q1

REPORT INFORMATION
  Report Type: Spontaneous
  Country: US (occurrence: US)
  Receive Date: 20180201
  Receipt Date: 20180201
  Transmission Date: 20180509
  Serious: Yes (Death, Hospitalization, Other)
  Sender: FDA-Public Use
  Company Number: None

PATIENT

DRUGS (1)
  1. ENOXAPARIN [Suspect]
     Active Substance: ENOXAPARIN

REACTIONS (6)
  - Haemoglobin decreased [None]
  - Haemodynamic instability [None]
  - Haemorrhage [None]
  - Respiratory failure [None]
  - Activated partial thromboplastin time shortened [None]
  - Shock [None]
